FAERS Safety Report 6084492-0 (Version None)
Quarter: 2009Q1

REPORT INFORMATION
  Report Type: 
  Country: None (occurrence: None)
  Receive Date: 20090219
  Receipt Date: 20090210
  Transmission Date: 20090719
  Serious: Yes (Hospitalization)
  Sender: FDA-Public Use
  Company Number: MX-SANOFI-SYNTHELABO-A01200901427

PATIENT
  Age: 80 Year
  Sex: Female
  Weight: 42 kg

DRUGS (10)
  1. INDERAL [Concomitant]
     Indication: HYPERTENSION
     Dosage: UNK
     Route: 048
     Dates: start: 20081101
  2. PRONTOFORT [Concomitant]
     Indication: MYALGIA
     Dosage: UNK
     Route: 048
     Dates: start: 20081101
  3. OSCAL 500+D [Concomitant]
     Indication: OSTEOPOROSIS
     Dosage: 500 MG + 200 IU DAILY
     Route: 048
     Dates: start: 20070101
  4. ACTONEL [Concomitant]
     Indication: OSTEOPOROSIS
     Route: 048
     Dates: start: 20070101, end: 20081101
  5. ASPIRINA PROTEC [Concomitant]
     Indication: PROPHYLAXIS
     Dosage: UNK
     Route: 048
  6. LOSARTAN [Concomitant]
     Indication: HYPERTENSION
     Dosage: UNK
     Route: 048
  7. METOPROLOL TARTRATE [Concomitant]
     Indication: HYPERTENSION
     Dosage: UNK
     Route: 048
  8. PLAVIX [Suspect]
     Indication: PROPHYLAXIS
     Route: 048
     Dates: start: 20050101
  9. PLAVIX [Suspect]
     Indication: CORONARY ARTERIAL STENT INSERTION
     Route: 048
     Dates: start: 20050101
  10. LOSEC A [Concomitant]
     Indication: ABDOMINAL DISCOMFORT
     Dosage: UNK
     Route: 048
     Dates: start: 20081101

REACTIONS (2)
  - ARRHYTHMIA [None]
  - EMBOLIC STROKE [None]
